FAERS Safety Report 16334528 (Version 3)
Quarter: 2019Q2

REPORT INFORMATION
  Report Type: Spontaneous
  Country: GB (occurrence: GB)
  Receive Date: 20190520
  Receipt Date: 20190528
  Transmission Date: 20190711
  Serious: Yes (Life-Threatening, Other)
  Sender: FDA-Public Use
  Company Number: GB-PFIZER INC-2019213387

PATIENT
  Age: 64 Year
  Sex: Male

DRUGS (4)
  1. RAMIPRIL. [Suspect]
     Active Substance: RAMIPRIL
     Dosage: 1.25 MG, UNK
     Route: 048
     Dates: end: 20190411
  2. CETIRIZINE DIHYDROCHLORIDE [Concomitant]
     Active Substance: CETIRIZINE HYDROCHLORIDE
     Dosage: UNK
  3. IBUPROFEN. [Suspect]
     Active Substance: IBUPROFEN
     Indication: PAIN
     Dosage: 1200 MG, QD
     Route: 048
     Dates: start: 20190402, end: 20190411
  4. ASPRIN [Concomitant]
     Active Substance: ASPIRIN
     Dosage: 75 MG

REACTIONS (3)
  - Hypercalcaemia [Unknown]
  - Acute kidney injury [Recovering/Resolving]
  - Bronchitis [Unknown]

NARRATIVE: CASE EVENT DATE: 20190411
